FAERS Safety Report 11026385 (Version 5)
Quarter: 2015Q4

REPORT INFORMATION
  Report Type: Report from Study
  Country: DE (occurrence: DE)
  Receive Date: 20150414
  Receipt Date: 20151002
  Transmission Date: 20160304
  Serious: Yes (Hospitalization, Other)
  Sender: FDA-Public Use
  Company Number: DE-GILEAD-2015-0147566

PATIENT
  Age: 57 Year
  Sex: Male
  Weight: 72 kg

DRUGS (11)
  1. SPIRONOLACTON [Concomitant]
     Active Substance: SPIRONOLACTONE
  2. SOLEDUM [Concomitant]
     Active Substance: EUCALYPTOL
  3. LEDIPASVIR/SOFOSBUVIR [Suspect]
     Active Substance: LEDIPASVIR\SOFOSBUVIR
     Indication: CHRONIC HEPATITIS C
     Dosage: 90 MG, QD
     Route: 048
     Dates: start: 20150119
  4. XELEVIA [Concomitant]
     Active Substance: SITAGLIPTIN PHOSPHATE
  5. LACTULOSE. [Concomitant]
     Active Substance: LACTULOSE
     Dosage: UNK
     Dates: start: 20150406
  6. LEVEMIR [Concomitant]
     Active Substance: INSULIN DETEMIR
  7. VITAMIN B12 [Concomitant]
     Active Substance: CYANOCOBALAMIN
  8. XIFAXAN [Concomitant]
     Active Substance: RIFAXIMIN
  9. PANTOPRAZOL [Concomitant]
     Active Substance: PANTOPRAZOLE SODIUM
  10. LEGALON [Concomitant]
     Active Substance: MILK THISTLE
  11. MOVICOL [Concomitant]
     Active Substance: POLYETHYLENE GLYCOL 3350\POTASSIUM CHLORIDE\SODIUM BICARBONATE\SODIUM CHLORIDE
     Dosage: UNK
     Dates: start: 20150406

REACTIONS (4)
  - Constipation [Recovering/Resolving]
  - Headache [Recovered/Resolved]
  - Faecaloma [Recovering/Resolving]
  - Ileus [Recovering/Resolving]

NARRATIVE: CASE EVENT DATE: 20150128
